FAERS Safety Report 19108976 (Version 2)
Quarter: 2021Q2

REPORT INFORMATION
  Report Type: Spontaneous
  Country: US (occurrence: US)
  Receive Date: 20210408
  Receipt Date: 20210511
  Transmission Date: 20210717
  Serious: No
  Sender: FDA-Public Use
  Company Number: US-IGSA-BIG0013914

PATIENT
  Age: 72 Year
  Sex: Male
  Weight: 102.9 kg

DRUGS (43)
  1. TESSALON [Concomitant]
     Active Substance: BENZONATATE
     Indication: COUGH
  2. ELIQUIS [Concomitant]
     Active Substance: APIXABAN
  3. MUPIROCIN. [Concomitant]
     Active Substance: MUPIROCIN
  4. FLUOCINONIDE. [Concomitant]
     Active Substance: FLUOCINONIDE
  5. VITAMIN D [COLECALCIFEROL] [Concomitant]
     Active Substance: CHOLECALCIFEROL
  6. PROTONIX [Concomitant]
     Active Substance: PANTOPRAZOLE SODIUM
  7. CODEINE [Concomitant]
     Active Substance: CODEINE
  8. SINGULAIR [Concomitant]
     Active Substance: MONTELUKAST SODIUM
     Dosage: 10 MILLIGRAM
  9. TORSEMIDE. [Concomitant]
     Active Substance: TORSEMIDE
  10. TRAMADOL. [Concomitant]
     Active Substance: TRAMADOL
  11. MIRALAX [Concomitant]
     Active Substance: POLYETHYLENE GLYCOL 3350
  12. GAMUNEX?C [Suspect]
     Active Substance: HUMAN IMMUNOGLOBULIN G
     Indication: IMMUNODEFICIENCY COMMON VARIABLE
     Dosage: 60 GRAM, Q.4WK.
     Route: 042
     Dates: start: 20210209
  13. FLOMAX [Concomitant]
     Active Substance: TAMSULOSIN HYDROCHLORIDE
     Dosage: 0.4 MILLIGRAM
  14. XOPENEX HFA [Concomitant]
     Active Substance: LEVALBUTEROL TARTRATE
  15. DESONIDE. [Concomitant]
     Active Substance: DESONIDE
  16. NASACORT ALLERGY 24HR [Concomitant]
     Active Substance: TRIAMCINOLONE ACETONIDE
  17. ATIVAN [Concomitant]
     Active Substance: LORAZEPAM
     Dosage: 1 MILLIGRAM
  18. ROSUVASTATIN CALCIUM. [Concomitant]
     Active Substance: ROSUVASTATIN CALCIUM
  19. QVAR [Concomitant]
     Active Substance: BECLOMETHASONE DIPROPIONATE
  20. AMBIEN [Concomitant]
     Active Substance: ZOLPIDEM TARTRATE
     Dosage: 10 MILLIGRAM
  21. DESLORATADINE. [Concomitant]
     Active Substance: DESLORATADINE
     Dosage: 5 MILLIGRAM
  22. PEPCID AC [Concomitant]
     Active Substance: FAMOTIDINE
  23. ALIGN [Concomitant]
     Active Substance: BIFIDOBACTERIUM LONGUM SUBSP. INFANTIS
  24. PRESERVISION AREDS 2 [Concomitant]
     Active Substance: MINERALS\VITAMINS
  25. SALINE NASAL MIST [Concomitant]
  26. GAMUNEX?C [Suspect]
     Active Substance: HUMAN IMMUNOGLOBULIN G
     Dosage: UNK
     Route: 042
     Dates: start: 201702
  27. ALLOPURINOL. [Concomitant]
     Active Substance: ALLOPURINOL
     Dosage: 300 MILLIGRAM
  28. PAROXETINE. [Concomitant]
     Active Substance: PAROXETINE
  29. HYDROCORTISONE. [Concomitant]
     Active Substance: HYDROCORTISONE
  30. METRONIDAZOLE. [Concomitant]
     Active Substance: METRONIDAZOLE
  31. PHYTOMULTI [Concomitant]
  32. FISH OIL [Concomitant]
     Active Substance: FISH OIL
  33. POTASSIUM 99 [Concomitant]
     Active Substance: POTASSIUM
  34. DHEA [Concomitant]
     Active Substance: PRASTERONE
     Dosage: 25 MILLIGRAM
  35. DICYCLOMINE HCL [Concomitant]
     Active Substance: DICYCLOMINE HYDROCHLORIDE
     Dosage: 10 MILLIGRAM
  36. NORVASC [Concomitant]
     Active Substance: AMLODIPINE BESYLATE
  37. TYLENOL [Concomitant]
     Active Substance: ACETAMINOPHEN
  38. COENZYME Q10 [Concomitant]
     Active Substance: DIETARY SUPPLEMENT\UBIDECARENONE
  39. QNASL [Concomitant]
     Active Substance: BECLOMETHASONE DIPROPIONATE
  40. GAMUNEX?C [Suspect]
     Active Substance: HUMAN IMMUNOGLOBULIN G
     Dosage: 60 GRAM, Q.4WK.
     Route: 042
     Dates: start: 20210405
  41. MAGNESIUM [Concomitant]
     Active Substance: MAGNESIUM
  42. RESTASIS [Concomitant]
     Active Substance: CYCLOSPORINE
  43. ASPIRIN. [Concomitant]
     Active Substance: ASPIRIN

REACTIONS (2)
  - Pruritus [Recovered/Resolved]
  - Urticaria [Unknown]

NARRATIVE: CASE EVENT DATE: 20210209
